FAERS Safety Report 11780667 (Version 1)
Quarter: 2015Q4

REPORT INFORMATION
  Report Type: Spontaneous
  Country: US (occurrence: US)
  Receive Date: 20151126
  Receipt Date: 20151126
  Transmission Date: 20160305
  Serious: No
  Sender: FDA-Public Use
  Company Number: US-HOSPIRA-2793598

PATIENT
  Sex: Female

DRUGS (1)
  1. MARCAINE [Suspect]
     Active Substance: BUPIVACAINE HYDROCHLORIDE
     Indication: NEURALGIA
     Dosage: NOT REPORTED
     Route: 058
     Dates: start: 2015

REACTIONS (5)
  - Pruritus [Recovered/Resolved]
  - Hypoaesthesia [Recovered/Resolved]
  - Dysgeusia [Recovered/Resolved]
  - Injection site erythema [Recovered/Resolved]
  - Injection site swelling [Recovered/Resolved]

NARRATIVE: CASE EVENT DATE: 2015
